FAERS Safety Report 6955368-9 (Version None)
Quarter: 2010Q3

REPORT INFORMATION
  Report Type: 
  Country: None (occurrence: None)
  Receive Date: 20100830
  Receipt Date: 20100819
  Transmission Date: 20110219
  Serious: Yes (Hospitalization)
  Sender: FDA-Public Use
  Company Number: JP-SANOFI-AVENTIS-2010SA038233

PATIENT
  Age: 59 Year
  Sex: Female
  Weight: 66 kg

DRUGS (15)
  1. CLEXANE [Suspect]
     Indication: ABDOMINAL OPERATION
     Route: 058
     Dates: start: 20100414, end: 20100414
  2. CLEXANE [Suspect]
     Route: 058
     Dates: start: 20100415, end: 20100420
  3. NSAID'S [Concomitant]
  4. ALL OTHER THERAPEUTIC PRODUCTS [Concomitant]
     Indication: PROPHYLAXIS
  5. CEFMETAZON [Concomitant]
     Route: 065
     Dates: start: 20100412, end: 20100414
  6. DAIKENTYUTO [Concomitant]
     Indication: PROPHYLAXIS
     Route: 048
     Dates: start: 20100413, end: 20100413
  7. LOXONIN [Concomitant]
     Route: 048
     Dates: start: 20100412, end: 20100412
  8. LOXONIN [Concomitant]
     Route: 048
     Dates: start: 20100412, end: 20100412
  9. SELBEX [Concomitant]
     Route: 048
     Dates: start: 20100412, end: 20100412
  10. SELBEX [Concomitant]
     Indication: PROPHYLAXIS
     Route: 048
     Dates: start: 20100412, end: 20100412
  11. PANTOL [Concomitant]
     Indication: PROPHYLAXIS
     Route: 065
     Dates: start: 20100412, end: 20100414
  12. VEEN D [Concomitant]
     Route: 041
     Dates: start: 20100412, end: 20100414
  13. SOLDEM 3A [Concomitant]
     Route: 041
     Dates: start: 20100412, end: 20100413
  14. VEEN-F [Concomitant]
     Route: 041
     Dates: start: 20100413, end: 20100413
  15. ALL OTHER THERAPEUTIC PRODUCTS [Concomitant]
     Route: 041
     Dates: start: 20100412, end: 20100414

REACTIONS (4)
  - ALANINE AMINOTRANSFERASE INCREASED [None]
  - ASPARTATE AMINOTRANSFERASE INCREASED [None]
  - BLOOD BILIRUBIN INCREASED [None]
  - HEPATIC FUNCTION ABNORMAL [None]
